FAERS Safety Report 8152250-9 (Version None)
Quarter: 2012Q1

REPORT INFORMATION
  Report Type: 
  Country: None (occurrence: None)
  Receive Date: 20120215
  Receipt Date: 20120215
  Transmission Date: 20120608
  Serious: Yes (Hospitalization)
  Sender: FDA-Public Use
  Company Number: None

PATIENT
  Sex: Female
  Weight: 78.5 kg

DRUGS (2)
  1. TARCEVA [Suspect]
     Dosage: 2900 MG
  2. GEMCITABINE HYDROCHLORIDE [Suspect]
     Dosage: 5700 MG

REACTIONS (9)
  - ASTHENIA [None]
  - FAECES DISCOLOURED [None]
  - DIARRHOEA [None]
  - DISEASE PROGRESSION [None]
  - LIVER FUNCTION TEST ABNORMAL [None]
  - FATIGUE [None]
  - ACTIVITIES OF DAILY LIVING IMPAIRED [None]
  - HYPERCALCAEMIA [None]
  - GENERAL PHYSICAL HEALTH DETERIORATION [None]
